FAERS Safety Report 8487970-X (Version None)
Quarter: 2012Q3

REPORT INFORMATION
  Report Type: 
  Country: None (occurrence: None)
  Receive Date: 20120705
  Receipt Date: 20120629
  Transmission Date: 20120928
  Serious: Yes (Hospitalization)
  Sender: FDA-Public Use
  Company Number: PHHY2012ES055999

PATIENT
  Age: 74 Year
  Sex: Male

DRUGS (3)
  1. AFINITOR [Suspect]
     Dosage: 10 MG, QD
     Route: 048
     Dates: start: 20120201
  2. SOMATOSTATIN [Concomitant]
     Indication: NEUROENDOCRINE TUMOUR
  3. AFINITOR [Suspect]
     Dosage: 5 MG, QD
     Route: 048
     Dates: end: 20120601

REACTIONS (9)
  - BONE MARROW FAILURE [None]
  - PETECHIAE [None]
  - THROMBOCYTOPENIA [None]
  - NEUTROPENIA [None]
  - OEDEMA [None]
  - HAEMOPTYSIS [None]
  - FLUID RETENTION [None]
  - ANAEMIA [None]
  - ECZEMA [None]
